FAERS Safety Report 18647329 (Version 6)
Quarter: 2021Q1

REPORT INFORMATION
  Report Type: Report from Study
  Country: None (occurrence: ES)
  Receive Date: 20201222
  Receipt Date: 20210121
  Transmission Date: 20210419
  Serious: Yes (Hospitalization)
  Sender: FDA-Public Use
  Company Number: ES-ABBVIE-20K-144-3697454-00

PATIENT
  Age: 80 Year
  Sex: Female

DRUGS (4)
  1. DUODOPA [Suspect]
     Active Substance: CARBIDOPA\LEVODOPA
     Dosage: MORNING DOSE 0, CONTINUOUS DOSE 1.4, EXTRA DOSE 1.1
     Route: 050
     Dates: start: 202012, end: 202012
  2. DUODOPA [Suspect]
     Active Substance: CARBIDOPA\LEVODOPA
     Indication: PARKINSON^S DISEASE
     Dosage: MD: 1.3 CD: 1.1 ED: 1.1
     Route: 050
     Dates: start: 20140129, end: 202012
  3. DUODOPA [Suspect]
     Active Substance: CARBIDOPA\LEVODOPA
     Dosage: MORNING DOSE 0, CONTINUOUS DOSE 1, EXTRA DOSE 1.1
     Route: 050
     Dates: start: 202012, end: 20210110
  4. DUODOPA [Suspect]
     Active Substance: CARBIDOPA\LEVODOPA
     Dosage: MORNING DOSE 1.3 ML, CONTINUOUS DOSE 1.1 ML EXTRA DOSE 1.1 ML,
     Route: 050
     Dates: start: 20210113

REACTIONS (9)
  - Unintentional medical device removal [Unknown]
  - Device breakage [Unknown]
  - Renal failure [Recovered/Resolved]
  - Stoma site infection [Recovered/Resolved]
  - Muscular weakness [Unknown]
  - Device dislocation [Unknown]
  - Device issue [Unknown]
  - Urinary tract infection [Recovering/Resolving]
  - Drug hypersensitivity [Unknown]

NARRATIVE: CASE EVENT DATE: 202012
